FAERS Safety Report 10055475 (Version 1)
Quarter: 2014Q2

REPORT INFORMATION
  Report Type: Spontaneous
  Country: US (occurrence: US)
  Receive Date: 20140403
  Receipt Date: 20140403
  Transmission Date: 20141212
  Serious: Yes (Hospitalization)
  Sender: FDA-Public Use
  Company Number: US-AMGEN-USASP2014022464

PATIENT
  Age: 93 Year
  Sex: Male

DRUGS (5)
  1. PROLIA [Suspect]
     Indication: OSTEOPOROSIS
     Dosage: UNK
     Route: 065
     Dates: start: 20140312
  2. LIPITOR [Concomitant]
  3. LYRICA [Concomitant]
  4. INSULIN [Concomitant]
  5. IMURAN                             /00001501/ [Concomitant]

REACTIONS (4)
  - Blood creatine increased [Unknown]
  - Blood urea increased [Unknown]
  - Renal disorder [Unknown]
  - Blood calcium decreased [Unknown]
